FAERS Safety Report 6786149-7 (Version None)
Quarter: 2010Q2

REPORT INFORMATION
  Report Type: 
  Country: None (occurrence: None)
  Receive Date: 20100622
  Receipt Date: 20100622
  Transmission Date: 20101027
  Serious: Yes (Hospitalization)
  Sender: FDA-Public Use
  Company Number: None

PATIENT
  Age: 21 Year
  Sex: Female
  Weight: 117.9352 kg

DRUGS (1)
  1. CEPHALEXIN [Suspect]
     Dates: start: 20100601, end: 20100618

REACTIONS (14)
  - ASTHENIA [None]
  - CHEST DISCOMFORT [None]
  - CONVULSION [None]
  - DIZZINESS [None]
  - DRUG HYPERSENSITIVITY [None]
  - DYSPNOEA [None]
  - FEELING COLD [None]
  - HYPOAESTHESIA [None]
  - HYPOAESTHESIA FACIAL [None]
  - HYPOKINESIA [None]
  - NAUSEA [None]
  - PANIC ATTACK [None]
  - PARAESTHESIA [None]
  - UPPER RESPIRATORY TRACT INFECTION [None]
